FAERS Safety Report 8257527-4 (Version None)
Quarter: 2012Q2

REPORT INFORMATION
  Report Type: 
  Country: None (occurrence: None)
  Receive Date: 20120403
  Receipt Date: 20120319
  Transmission Date: 20120825
  Serious: Yes (Other)
  Sender: FDA-Public Use
  Company Number: JP-WATSON-2012-04741

PATIENT
  Age: 35 Year
  Sex: Female

DRUGS (2)
  1. PREDNISOLONE [Suspect]
     Indication: SYSTEMIC LUPUS ERYTHEMATOSUS
     Dosage: 60 MG, DAILY
     Route: 065
  2. PREDNISOLONE [Suspect]
     Dosage: 50 MG, DAILY
     Route: 048

REACTIONS (1)
  - PNEUMATOSIS INTESTINALIS [None]
